FAERS Safety Report 12432099 (Version 2)
Quarter: 2016Q3

REPORT INFORMATION
  Report Type: Spontaneous
  Country: US (occurrence: US)
  Receive Date: 20160603
  Receipt Date: 20160901
  Transmission Date: 20161109
  Serious: No
  Sender: FDA-Public Use
  Company Number: US-THE MEDICINES COMPANY-US-MDCO-16-00034

PATIENT
  Sex: Male

DRUGS (2)
  1. VANCOMYCIN [Concomitant]
     Active Substance: VANCOMYCIN
     Indication: PRODUCT USED FOR UNKNOWN INDICATION
     Dosage: NOT REPORTED
  2. ORBACTIV [Suspect]
     Active Substance: ORITAVANCIN
     Indication: WOUND INFECTION STAPHYLOCOCCAL
     Dosage: NOT REPORTED
     Dates: start: 20160203

REACTIONS (2)
  - Drug ineffective [Unknown]
  - No adverse event [Unknown]
